FAERS Safety Report 7521949-7 (Version None)
Quarter: 2011Q2

REPORT INFORMATION
  Report Type: 
  Country: None (occurrence: None)
  Receive Date: 20110603
  Receipt Date: 20110525
  Transmission Date: 20111010
  Serious: No
  Sender: FDA-Public Use
  Company Number: ES-SANOFI-AVENTIS-2011SA033573

PATIENT
  Age: 34 Year
  Sex: Female

DRUGS (3)
  1. ARAVA [Suspect]
     Route: 048
     Dates: end: 20110525
  2. LEVOTHROID [Concomitant]
  3. HYDROXYCHLOROQUINE SULFATE [Concomitant]
     Dates: end: 20110525

REACTIONS (1)
  - DRUG EXPOSURE DURING PREGNANCY [None]
